FAERS Safety Report 4507319-4 (Version None)
Quarter: 2004Q4

REPORT INFORMATION
  Report Type: 
  Country: None (occurrence: None)
  Receive Date: 20041025
  Receipt Date: 20040726
  Transmission Date: 20050328
  Serious: Yes (Hospitalization)
  Sender: FDA-Public Use
  Company Number: US-JNJFOC-20040707037

PATIENT
  Age: 73 Year
  Sex: Female

DRUGS (10)
  1. INFLIXIMAB (INFLIXIMAB, RECOMBINANT) LYOPHILIZED POWDER [Suspect]
     Indication: RHEUMATOID ARTHRITIS
     Dosage: INTRAVENOUS
     Route: 042
     Dates: start: 20001013, end: 20030901
  2. DIVOAN (VALSARTAN) [Concomitant]
  3. FOLIC ACID [Concomitant]
  4. FOSAMAX [Concomitant]
  5. GLUCOPHAGE [Concomitant]
  6. METHOTREXATE [Concomitant]
  7. MULTIVITAMIN [Concomitant]
  8. PEPCID (FAMOTIDINE) UNSPECIFIED [Concomitant]
  9. VIOXX [Concomitant]
  10. AVANDIA [Concomitant]

REACTIONS (1)
  - BRONCHITIS [None]
